FAERS Safety Report 4439748-1 (Version None)
Quarter: 2004Q3

REPORT INFORMATION
  Report Type: 
  Country: None (occurrence: None)
  Receive Date: 20040831
  Receipt Date: 20040819
  Transmission Date: 20050211
  Serious: No
  Sender: FDA-Public Use
  Company Number: 04H-151-0271250-00

PATIENT

DRUGS (1)
  1. NOREPINEPHRINE INJECTION (NOREPINEPHRINE BITARTRATE INJECTION) [Suspect]
     Indication: CEREBROVASCULAR DISORDER
     Dosage: CONTINUOUS, INTRAVENOUS
     Route: 042

REACTIONS (2)
  - HAEMORRHAGE [None]
  - PETECHIAE [None]
